FAERS Safety Report 4899042-1 (Version None)
Quarter: 2006Q1

REPORT INFORMATION
  Report Type: 
  Country: None (occurrence: None)
  Receive Date: 20060202
  Receipt Date: 20051130
  Transmission Date: 20060701
  Serious: Yes (Other)
  Sender: FDA-Public Use
  Company Number: US-BRISTOL-MYERS SQUIBB COMPANY-13201041

PATIENT
  Age: 59 Year
  Sex: Male

DRUGS (16)
  1. CETUXIMAB [Suspect]
     Indication: NON-SMALL CELL LUNG CANCER
     Dosage: 235 MG+/-.
     Route: 042
     Dates: start: 20051130, end: 20051130
  2. ASPIRIN [Concomitant]
     Route: 048
     Dates: end: 20051101
  3. BENADRYL [Concomitant]
  4. BENZONATATE [Concomitant]
     Indication: COUGH
     Route: 048
     Dates: start: 19980308, end: 20051101
  5. DECADRON [Concomitant]
  6. DIOVAN HCT [Concomitant]
     Indication: HYPERTENSION
     Route: 048
     Dates: start: 19980331, end: 20051109
  7. FLONASE [Concomitant]
     Indication: SEASONAL ALLERGY
     Route: 045
     Dates: start: 20051005, end: 20051101
  8. MEGESTROL [Concomitant]
     Indication: DECREASED APPETITE
     Route: 048
     Dates: start: 20051005
  9. METOPROLOL [Concomitant]
     Indication: HYPERTENSION
     Route: 048
     Dates: start: 20050803
  10. MILK OF MAGNESIA TAB [Concomitant]
     Indication: CONSTIPATION
     Route: 048
     Dates: start: 20051012
  11. NIACIN [Concomitant]
     Indication: MEDICAL DIET
     Route: 048
     Dates: end: 20051101
  12. PLAVIX [Concomitant]
     Route: 048
     Dates: end: 20051101
  13. PRAVACHOL [Concomitant]
     Indication: HYPERCHOLESTEROLAEMIA
     Route: 048
     Dates: end: 20051101
  14. PRILOSEC [Concomitant]
     Indication: GASTROOESOPHAGEAL REFLUX DISEASE
     Route: 048
  15. SENOKOT [Concomitant]
     Indication: CONSTIPATION
     Route: 048
  16. VICODIN [Concomitant]
     Indication: PAIN
     Dosage: 7.5 MG/750 MG.
     Route: 048
     Dates: start: 19980308

REACTIONS (1)
  - CONVULSION [None]
